FAERS Safety Report 5742157-6 (Version None)
Quarter: 2008Q2

REPORT INFORMATION
  Report Type: 
  Country: None (occurrence: None)
  Receive Date: 20080514
  Receipt Date: 20080514
  Transmission Date: 20081010
  Serious: No
  Sender: FDA-Public Use
  Company Number: None

PATIENT
  Sex: Female
  Weight: 38.5557 kg

DRUGS (1)
  1. CREST PRO HEALTH RINSE [Suspect]
     Indication: PROPHYLAXIS
     Dosage: 4 TSP NIGHTLY  DENTAL
     Route: 004

REACTIONS (1)
  - TOOTH DISCOLOURATION [None]
